FAERS Safety Report 4913437-9 (Version None)
Quarter: 2006Q1

REPORT INFORMATION
  Report Type: 
  Country: None (occurrence: None)
  Receive Date: 20060113
  Receipt Date: 20050211
  Transmission Date: 20060701
  Serious: Yes (Other)
  Sender: FDA-Public Use
  Company Number: HQWYE340915FEB05

PATIENT
  Age: 66 Year
  Sex: Female

DRUGS (4)
  1. PREMPRO [Suspect]
     Dosage: ORAL
     Route: 048
     Dates: start: 19970607
  2. PREMARIN [Suspect]
     Dosage: ORAL
     Route: 048
     Dates: start: 20011005
  3. PROVERA [Suspect]
     Dosage: ORAL
     Route: 048
     Dates: start: 19960127, end: 19970317
  4. ESTRADERM [Concomitant]

REACTIONS (1)
  - BREAST CANCER [None]
